FAERS Safety Report 20010162 (Version 1)
Quarter: 2021Q4

REPORT INFORMATION
  Report Type: Spontaneous
  Country: US (occurrence: US)
  Receive Date: 20211029
  Receipt Date: 20211029
  Transmission Date: 20220303
  Serious: Yes (Hospitalization, Other)
  Sender: FDA-Public Use
  Company Number: US-SPECGX-T202102418

PATIENT
  Sex: Female

DRUGS (65)
  1. ACETAMINOPHEN\HYDROCODONE [Suspect]
     Active Substance: ACETAMINOPHEN\HYDROCODONE
     Indication: Pain
     Dosage: 1 DOSAGE FORM, PRN (TAKE 1 TABLET TWO TIMES A DAY AS NEEDED)
     Route: 048
  2. ACETAMINOPHEN\HYDROCODONE [Suspect]
     Active Substance: ACETAMINOPHEN\HYDROCODONE
     Dosage: 1 DOSAGE FORM, PRN (TAKE 1 TABLET BY MOUTH THREE TIMES A DAY AS NEEDED)
     Route: 048
  3. ACETAMINOPHEN\HYDROCODONE [Suspect]
     Active Substance: ACETAMINOPHEN\HYDROCODONE
     Indication: Pain
     Dosage: 1 DOSAGE FORM, PRN (TAKE ONE TABLET BY MOUTH EVERY 8 HOURS AS NEEDED)
     Route: 048
  4. ACETAMINOPHEN AND CODEINE [Suspect]
     Active Substance: ACETAMINOPHEN\CODEINE PHOSPHATE
     Indication: Pain
     Dosage: UNK (ONE TABLET EVERY 6 HOURS AS NEEDED)
     Route: 048
  5. MORPHINE [Suspect]
     Active Substance: MORPHINE
     Indication: Product used for unknown indication
     Dosage: UNK
     Route: 065
  6. NORCO [Suspect]
     Active Substance: ACETAMINOPHEN\HYDROCODONE BITARTRATE
     Indication: Product used for unknown indication
     Dosage: UNK
     Route: 065
  7. MELOXICAM [Suspect]
     Active Substance: MELOXICAM
     Indication: Arthritis
     Dosage: 15 MILLIGRAM, QD
     Route: 048
  8. MELOXICAM [Suspect]
     Active Substance: MELOXICAM
     Dosage: 7.5 MILLIGRAM, QD (TAKE ONE TABLET DAILY)
     Route: 048
  9. BUTRANS [Suspect]
     Active Substance: BUPRENORPHINE
     Indication: Pain
     Dosage: UNK (20 MCG/HR, APPLY ONE PATCH WEEKLY)
     Route: 062
  10. NICOTINE [Suspect]
     Active Substance: NICOTINE
     Indication: Product used for unknown indication
     Dosage: UNK (21 MCG/HOUR, APPLY TO DRY SKIN DAILY X 20 DAYS)
     Route: 061
  11. NICOTINE [Suspect]
     Active Substance: NICOTINE
     Dosage: UNK (14 MCG, APPLY ONE PATCH TO DRY SKIN X 14 DAYS)
     Route: 061
  12. NICOTINE [Suspect]
     Active Substance: NICOTINE
     Dosage: UNK (7 MCG/HOUR, APPLY ONE PATCH TO DRY SKIN X 14 DAYS)
     Route: 061
  13. DICLOFENAC SODIUM [Suspect]
     Active Substance: DICLOFENAC SODIUM
     Indication: Product used for unknown indication
     Dosage: 75 MILLIGRAM, BID (TAKE ONE TABLET TWO TIMES A DAY, TAKE WITH FOOD)
     Route: 048
  14. LISINOPRIL [Suspect]
     Active Substance: LISINOPRIL
     Indication: Blood pressure abnormal
     Dosage: 40 MILLIGRAM, QD
     Route: 048
  15. LISINOPRIL [Suspect]
     Active Substance: LISINOPRIL
     Dosage: 20 MILLIGRAM, BID (TAKE ONE TABLET TWO TIMES A DAY)
     Route: 048
  16. LISINOPRIL [Suspect]
     Active Substance: LISINOPRIL
     Dosage: 2.5 MILLIGRAM, QD
     Route: 048
  17. IBUPROFEN [Suspect]
     Active Substance: IBUPROFEN
     Indication: Pain
     Dosage: 800 MILLIGRAM, TID (TAKE ONE TABLET THREE TIMES A DAY)
     Route: 048
  18. IBUPROFEN [Suspect]
     Active Substance: IBUPROFEN
     Indication: Inflammation
  19. ALPRAZOLAM [Suspect]
     Active Substance: ALPRAZOLAM
     Indication: Anxiety
     Dosage: 2 MILLIGRAM, PRN (ONE TABLET BY MOUTH TWICE DAILY AS NEEDED)
     Route: 048
  20. BACLOFEN [Suspect]
     Active Substance: BACLOFEN
     Indication: Muscle spasms
     Dosage: 10 MILLIGRAM, PRN (TAKE ONE TABLET BY MOUTH THREE TIMES A DAY AS NEEDED)
     Route: 048
  21. HYDROCHLOROTHIAZIDE [Suspect]
     Active Substance: HYDROCHLOROTHIAZIDE
     Indication: Product used for unknown indication
     Dosage: 25 MILLIGRAM, QD (TAKE ONE TABLET DAILY)
     Route: 048
  22. HYDROCHLOROTHIAZIDE [Suspect]
     Active Substance: HYDROCHLOROTHIAZIDE
     Dosage: 50 MILLIGRAM, BID (TAKE ONE TABLET TWO TIMES A DAY)
     Route: 048
  23. MORPHINE SULFATE [Suspect]
     Active Substance: MORPHINE SULFATE
     Indication: Pain
     Dosage: 15 MILLIGRAM, Q12H (TAKE ONE CAPSULE EVERY 12 HOURS)
     Route: 048
  24. MORPHINE SULFATE [Suspect]
     Active Substance: MORPHINE SULFATE
     Dosage: 15 MILLIGRAM, PRN (TAKE ONE CAPSULE EVERY 12 HOURS AS NEEDED)
     Route: 048
  25. ATORVASTATIN [Suspect]
     Active Substance: ATORVASTATIN
     Indication: Blood cholesterol abnormal
     Dosage: 40 MILLIGRAM, QHS (TAKE ONE TABLET AT BEDTIME)
     Route: 048
  26. OMEPRAZOLE [Suspect]
     Active Substance: OMEPRAZOLE
     Indication: Gastrooesophageal reflux disease
     Dosage: 20 MILLIGRAM, BID (TAKE ONE CAPSULE TWO TIMES A DAY)
     Route: 048
  27. OMEPRAZOLE [Suspect]
     Active Substance: OMEPRAZOLE
     Dosage: 20 MILLIGRAM, QD (1 CAPSULE DAILY)
     Route: 048
  28. TERCONAZOLE [Suspect]
     Active Substance: TERCONAZOLE
     Indication: Product used for unknown indication
     Dosage: UNK (0.4%, INSERT ONE APPLICATOR X3 NIGHTS)
     Route: 067
  29. FLUCONAZOLE [Suspect]
     Active Substance: FLUCONAZOLE
     Indication: Antifungal treatment
     Dosage: 150 MILLIGRAM, QD (1 TABLET X1 DAY)
     Route: 048
  30. FLUCONAZOLE [Suspect]
     Active Substance: FLUCONAZOLE
     Dosage: 200 MILLIGRAM, QD (TAKE ONE TABLET ONCE DAILY FOR 7 DAYS)
     Route: 048
  31. VITAMIN D3 [Suspect]
     Active Substance: CHOLECALCIFEROL
     Indication: Product used for unknown indication
     Dosage: 2000 INTERNATIONAL UNIT, QD (ONE TABLET DAILY)
     Route: 048
  32. VITAMIN D3 [Suspect]
     Active Substance: CHOLECALCIFEROL
     Dosage: 4000 INTERNATIONAL UNIT, QD (TWO TABLET ONCE DAILY)
     Route: 048
  33. CHANTIX [Suspect]
     Active Substance: VARENICLINE TARTRATE
     Indication: Product used for unknown indication
     Dosage: UNK (0.5 AND 1MG AS DIRECTED)
     Route: 065
  34. CHANTIX [Suspect]
     Active Substance: VARENICLINE TARTRATE
     Dosage: 1 MILLIGRAM, BID (1 TABLET IN THE MORNING + 1 TABLET IN THE EVENING)
     Route: 048
  35. BUMETANIDE [Suspect]
     Active Substance: BUMETANIDE
     Indication: Product used for unknown indication
     Dosage: 1 MILLIGRAM, BID (1 TABLET TWO TIMES DAILY)
     Route: 048
  36. PENICILLIN V POTASSIUM [Suspect]
     Active Substance: PENICILLIN V POTASSIUM
     Indication: Product used for unknown indication
     Dosage: 500 MILLIGRAM, QID (TAKE ONE TABLET FOUR TIMES A DAY)
     Route: 048
  37. PENICILLIN V POTASSIUM [Suspect]
     Active Substance: PENICILLIN V POTASSIUM
     Dosage: 2000 MILLIGRAM, QD (500 MG, FOUR TABLET 1 HOUR PRIOR TO DENTAL APPOINTMENT)
     Route: 048
  38. PENICILLIN V POTASSIUM [Suspect]
     Active Substance: PENICILLIN V POTASSIUM
     Dosage: 500 MILLIGRAM, Q6H (ONE TABLET EVERY 6 HOURS, UNTIL GONE)
     Route: 048
  39. PREDNISONE [Suspect]
     Active Substance: PREDNISONE
     Indication: Product used for unknown indication
     Dosage: 20 MILLIGRAM, BID (TWO TABLET TWICE DAILY X 1 WEEK)
     Route: 048
  40. PREDNISONE [Suspect]
     Active Substance: PREDNISONE
     Dosage: 10 MILLIGRAM, BID (ONE TABLET TWICE DAILY X 1 WEEK)
     Route: 048
  41. PREDNISONE [Suspect]
     Active Substance: PREDNISONE
     Dosage: 10 MILLIGRAM, QD (1 TABLET DAILY X 1 WEEK)
     Route: 048
  42. PREDNISONE [Suspect]
     Active Substance: PREDNISONE
     Dosage: 5 MILLIGRAM, QD (ONE TABLET ONCE DAILY X 2 WEEK)
     Route: 048
  43. QVAR REDIHALER [Suspect]
     Active Substance: BECLOMETHASONE DIPROPIONATE
     Indication: Product used for unknown indication
     Dosage: UNK (40 MCG, TWO PUFFS TWICE DAILY)
     Route: 048
  44. SCOPOLAMINE [Suspect]
     Active Substance: SCOPOLAMINE
     Indication: Nausea
     Dosage: UNK (1 MG, APPLY ONE PATCH BEHIND EAR ONCE DAILY AS NEEDED)
     Route: 061
  45. POTASSIUM CHLORIDE [Suspect]
     Active Substance: POTASSIUM CHLORIDE
     Indication: Product used for unknown indication
     Dosage: 20 MILLIEQUIVALENT, BID (TAKE ONE TABLET TWO TIMES A DAY)
     Route: 048
  46. LEVOFLOXACIN [Suspect]
     Active Substance: LEVOFLOXACIN
     Indication: Product used for unknown indication
     Dosage: 750 MILLIGRAM, QD (TAKE ONE TABLET DAILY FOR 7 DAYS)
     Route: 048
  47. PROMETHAZINE [Suspect]
     Active Substance: PROMETHAZINE HYDROCHLORIDE
     Indication: Product used for unknown indication
     Dosage: UNK (6.25 MG/5ML, TAKE TWO TEASPOONS THREE TIMES A DAY FOR 10 DAYS)
     Route: 048
  48. FENOFIBRATE [Suspect]
     Active Substance: FENOFIBRATE
     Indication: Product used for unknown indication
     Dosage: 54 MILLIGRAM, QD (1 TABLET ONCE DAILY)
     Route: 048
  49. CHOLESTYRAMINE [Suspect]
     Active Substance: CHOLESTYRAMINE
     Indication: Product used for unknown indication
     Dosage: UNK (4 MG/DOSE, 1 SCOOPFUL 9 GRAMS THREE TIMES DAILY)
     Route: 048
  50. HYDROCORTISONE [Suspect]
     Active Substance: HYDROCORTISONE
     Indication: Product used for unknown indication
     Dosage: UNK (1 PERCENT, APPLY TO AFFECTED AREA TWICE DAILY AS NEEDED X3 DAYS)
     Route: 061
  51. DOK [Suspect]
     Active Substance: DOCUSATE SODIUM
     Indication: Constipation
     Dosage: 100 MILLIGRAM, PRN (1 CAPSULE TWICE DAILY AS NEEDED)
     Route: 048
  52. DOK [Suspect]
     Active Substance: DOCUSATE SODIUM
     Dosage: 100 MILLIGRAM, TID (1 CAPSULE THREE TIMES DAILY)
     Route: 048
  53. CLINDAMYCIN HYDROCHLORIDE [Suspect]
     Active Substance: CLINDAMYCIN HYDROCHLORIDE
     Indication: Antibiotic therapy
     Dosage: 300 MILLIGRAM, Q6H (1 CAPSULE EVERY 6 HOURS)
     Route: 048
  54. HYDROXYCHLOROQUINE SULFATE [Suspect]
     Active Substance: HYDROXYCHLOROQUINE SULFATE
     Indication: Product used for unknown indication
     Dosage: 1 DOSAGE FORM, QD (ONE TABLET ONCE DAILY)
     Route: 048
  55. NIACIN [Suspect]
     Active Substance: NIACIN
     Indication: Product used for unknown indication
     Dosage: 500 MILLIGRAM, QD (1 CAPSULE ONCE DAILY)
     Route: 048
  56. FOLIC ACID [Suspect]
     Active Substance: FOLIC ACID
     Indication: Product used for unknown indication
     Dosage: 1 MILLIGRAM (1 TABLET ONCE DAILY)
     Route: 048
  57. METHOTREXATE SODIUM [Suspect]
     Active Substance: METHOTREXATE SODIUM
     Indication: Product used for unknown indication
     Dosage: 10 MILLIGRAM, WEEKLY (2.5 MG, FOUR TABLET ONCE A WEEK)
     Route: 048
  58. METHOTREXATE SODIUM [Suspect]
     Active Substance: METHOTREXATE SODIUM
     Dosage: 15 MILLIGRAM, WEEKLY (2.5 MG, 6 TABLET ONCE A WEEK)
     Route: 048
  59. AMOXICILLIN [Suspect]
     Active Substance: AMOXICILLIN
     Indication: Product used for unknown indication
     Dosage: 500 MILLIGRAM, BID (TAKE 1 CAPSULE TWO TIMES DAILY)
     Route: 048
  60. EZETIMIBE [Suspect]
     Active Substance: EZETIMIBE
     Indication: Product used for unknown indication
     Dosage: 10 MILLIGRAM, QD (1 TABLET ONCE DAILY)
     Route: 048
  61. EZETIMIBE [Suspect]
     Active Substance: EZETIMIBE
     Dosage: 1 MILLIGRAM, BID (1 TABLET TWO TIMES DAILY)
     Route: 048
  62. AZITHROMYCIN ANHYDROUS [Suspect]
     Active Substance: AZITHROMYCIN ANHYDROUS
     Indication: Product used for unknown indication
     Dosage: UNK (250 MG, TAKE TWO TABLET ON DAY ONE, 1 TABLET ON DAY 2-5)
     Route: 048
  63. CEPHALEXIN [Suspect]
     Active Substance: CEPHALEXIN
     Indication: Product used for unknown indication
     Dosage: 500 MILLIGRAM, TID (1 CAPSULE THREE TIMES DAILYX10 DAYS)
     Route: 048
  64. MUPIROCIN [Suspect]
     Active Substance: MUPIROCIN
     Indication: Product used for unknown indication
     Dosage: UNK (2 PERCENT, APPLY TO AFFECTED AREA TWICE DAILYX14 DAYS)
     Route: 061
  65. HYDROCORTISONE [Suspect]
     Active Substance: HYDROCORTISONE
     Indication: Product used for unknown indication
     Dosage: UNK (25 MG, INSERT 1 SUPPOSITORY TWICE DAILY)
     Route: 054

REACTIONS (9)
  - Abdominal hernia [Unknown]
  - Gastrointestinal haemorrhage [Unknown]
  - Haematochezia [Unknown]
  - Intestinal obstruction [Unknown]
  - Drug dependence [Unknown]
  - Overdose [Unknown]
  - Injury [Unknown]
  - Gastrointestinal disorder [Unknown]
  - Constipation [Unknown]
